FAERS Safety Report 8947100 (Version 1)
Quarter: 2012Q4

REPORT INFORMATION
  Report Type: 
  Country: CA (occurrence: CA)
  Receive Date: 20121205
  Receipt Date: 20121205
  Transmission Date: 20130627
  Serious: Yes (Other)
  Sender: FDA-Public Use
  Company Number: CA-ROCHE-1163906

PATIENT
  Sex: Male

DRUGS (3)
  1. XOLAIR [Suspect]
     Indication: ASTHMA
     Route: 058
     Dates: start: 20071030
  2. XOLAIR [Suspect]
     Route: 058
     Dates: start: 20071115
  3. XOLAIR [Suspect]
     Route: 058
     Dates: start: 20121002

REACTIONS (6)
  - Hypertension [Recovering/Resolving]
  - Skin plaque [Unknown]
  - Dry skin [Unknown]
  - Heart rate increased [Unknown]
  - Erythema [Unknown]
  - Rash [Unknown]
